FAERS Safety Report 4616467-X (Version None)
Quarter: 2005Q1

REPORT INFORMATION
  Report Type: 
  Country: None (occurrence: None)
  Receive Date: 20050318
  Receipt Date: 20050308
  Transmission Date: 20050727
  Serious: Yes (Hospitalization, Other)
  Sender: FDA-Public Use
  Company Number: HQWYE141807FEB05

PATIENT
  Age: 56 Year
  Sex: Female
  Weight: 50 kg

DRUGS (22)
  1. RAPAMUNE [Suspect]
     Indication: PROPHYLAXIS AGAINST TRANSPLANT REJECTION
     Dosage: 2 MG 1X PER 1 DAY, ORAL
     Route: 048
     Dates: start: 20040824, end: 20041201
  2. RAPAMUNE [Suspect]
     Indication: PROPHYLAXIS AGAINST TRANSPLANT REJECTION
     Dosage: 2 MG 1X PER 1 DAY, ORAL
     Route: 048
     Dates: start: 20050301
  3. PREDNISONE [Concomitant]
  4. ACETYLSALICYLIC ACID SRT [Concomitant]
  5. FISH (FISH OIL) [Concomitant]
  6. NEXIUM [Concomitant]
  7. MULTIVITAMIN, PLAIN (MULTIVITAMIN, PLAIN) [Concomitant]
  8. SINGULAIR [Concomitant]
  9. FORTEO [Concomitant]
  10. VALCYTE [Concomitant]
  11. MYCELEX [Concomitant]
  12. EPOGEN [Concomitant]
  13. OSCAL (CALCIUM CARBONATE) [Concomitant]
  14. LEVOXYL [Concomitant]
  15. LOPRESSOR [Concomitant]
  16. COLACE (DOCUSATE SODIUM) [Concomitant]
  17. BACTRIM [Concomitant]
  18. ADVAIR (FLUTICASONE PROPIONATE/SALMETEROL XINAFOATE) [Concomitant]
  19. CYTOMEL [Concomitant]
  20. AMBIEN [Concomitant]
  21. SENOKOT [Concomitant]
  22. ACTIGALL [Concomitant]

REACTIONS (3)
  - CORONARY ARTERY OCCLUSION [None]
  - IMMUNOSUPPRESSANT DRUG LEVEL INCREASED [None]
  - MYOCARDIAL INFARCTION [None]
